FAERS Safety Report 4342792-6 (Version None)
Quarter: 2004Q2

REPORT INFORMATION
  Report Type: 
  Country: None (occurrence: None)
  Receive Date: 20040419
  Receipt Date: 20040419
  Transmission Date: 20050107
  Serious: Yes (Hospitalization)
  Sender: FDA-Public Use
  Company Number: None

PATIENT
  Sex: Male
  Weight: 80 kg

DRUGS (2)
  1. PRIMAXIN [Suspect]
     Indication: INFECTION
     Dosage: 500MG EVERY 6 HOURS IV
     Route: 042
     Dates: start: 20040407, end: 20040412
  2. CANCIDAS [Suspect]
     Indication: FUNGAEMIA
     Dosage: 50 MG QD IV
     Route: 042
     Dates: start: 20040407, end: 20040412

REACTIONS (1)
  - RASH MACULO-PAPULAR [None]
